FAERS Safety Report 16596623 (Version 1)
Quarter: 2019Q3

REPORT INFORMATION
  Report Type: Spontaneous
  Country: US (occurrence: US)
  Receive Date: 20190719
  Receipt Date: 20190719
  Transmission Date: 20191004
  Serious: No
  Sender: FDA-Public Use
  Company Number: US-ASTRAZENECA-2019SE92054

PATIENT

DRUGS (3)
  1. IBRANCE [Suspect]
     Active Substance: PALBOCICLIB
     Indication: BREAST CANCER METASTATIC
     Route: 048
     Dates: start: 201805, end: 20180515
  2. FASLODEX [Suspect]
     Active Substance: FULVESTRANT
     Indication: BREAST CANCER METASTATIC
     Dosage: ANOTHER 3 WEEKS, AND UPPED THE DOSE BACK TO 125MG.
     Route: 030
     Dates: start: 201805, end: 20190515
  3. FASLODEX [Suspect]
     Active Substance: FULVESTRANT
     Indication: BREAST CANCER METASTATIC
     Dosage: ON 125MG, THEN THEY CUT THE DOSE TO 100MG
     Route: 030
     Dates: start: 201805, end: 20190515

REACTIONS (4)
  - Product dose omission [Unknown]
  - Decreased activity [Unknown]
  - White blood cell count decreased [Unknown]
  - Arthralgia [Unknown]
